FAERS Safety Report 9576291 (Version 1)
Quarter: 2013Q4

REPORT INFORMATION
  Report Type: Spontaneous
  Country: US (occurrence: US)
  Receive Date: 20131001
  Receipt Date: 20131001
  Transmission Date: 20140711
  Serious: No
  Sender: FDA-Public Use
  Company Number: US-AMGEN-USASP2013002843

PATIENT
  Age: 38 Year
  Sex: Male

DRUGS (4)
  1. ENBREL [Suspect]
     Indication: ANKYLOSING SPONDYLITIS
     Dosage: 50 MG, QWK
     Route: 058
     Dates: start: 201212
  2. TRAMADOL HCL [Concomitant]
     Dosage: UNK
  3. VITAMIN D                          /00107901/ [Concomitant]
     Dosage: 400 UNIT, UNK
  4. IBUPROFEN [Concomitant]
     Dosage: 200 MG, UNK

REACTIONS (1)
  - Injection site pain [Unknown]
